FAERS Safety Report 8826016 (Version 2)
Quarter: 2012Q4

REPORT INFORMATION
  Report Type: Report from Study
  Country: JP (occurrence: JP)
  Receive Date: 20121005
  Receipt Date: 20121123
  Transmission Date: 20130627
  Serious: Yes (Death, Life-Threatening)
  Sender: FDA-Public Use
  Company Number: JP-PFIZER INC-2012243093

PATIENT
  Age: 54 Year
  Sex: Male
  Weight: 63 kg

DRUGS (10)
  1. XALKORI [Suspect]
     Indication: NON-SMALL CELL LUNG CANCER
     Dosage: 250 mg, 2x/day
     Route: 048
     Dates: start: 20120705, end: 20120709
  2. RANMARK [Suspect]
     Indication: BONE CANCER METASTATIC
     Dosage: 120 mg, single
     Route: 058
     Dates: start: 20120615
  3. RANMARK [Suspect]
     Indication: HYPERCALCAEMIA
  4. OXYCONTIN [Concomitant]
     Dosage: 10 mg, 2x/day
     Route: 048
     Dates: end: 20120709
  5. OXINORM [Concomitant]
     Dosage: 5 mg, 1x/day
     Route: 048
     Dates: end: 20120709
  6. ZYPREXA [Concomitant]
     Dosage: 5 mg, 1x/day
     Route: 048
     Dates: end: 20120709
  7. PARIET [Concomitant]
     Dosage: 10 mg, 1x/day
     Route: 048
     Dates: end: 20120709
  8. WARFARIN [Concomitant]
     Dosage: 1 mg, 1x/day
     Route: 048
     Dates: end: 20120709
  9. PANTOSIN [Concomitant]
     Dosage: 200 mg, 3x/day
     Route: 048
     Dates: end: 20120709
  10. MAG-LAX [Concomitant]
     Dosage: 660 mg, 3x/day
     Route: 048
     Dates: end: 20120709

REACTIONS (3)
  - Disease progression [Fatal]
  - Non-small cell lung cancer [Fatal]
  - Hypocalcaemia [Not Recovered/Not Resolved]
